FAERS Safety Report 4531601-8 (Version None)
Quarter: 2004Q4

REPORT INFORMATION
  Report Type: 
  Country: None (occurrence: None)
  Receive Date: 20041216
  Receipt Date: 20041202
  Transmission Date: 20050328
  Serious: Yes (Other)
  Sender: FDA-Public Use
  Company Number: A03200404057

PATIENT
  Age: 35 Year
  Sex: Male

DRUGS (1)
  1. ELOXATIN [Suspect]
     Indication: COLON CANCER
     Dosage: NI; INTRAVENOUS NOS
     Route: 042
     Dates: start: 20040101, end: 20040101

REACTIONS (1)
  - PORTAL HYPERTENSION [None]
